FAERS Safety Report 7091631-1 (Version None)
Quarter: 2010Q4

REPORT INFORMATION
  Report Type: 
  Country: None (occurrence: None)
  Receive Date: 20101109
  Receipt Date: 20090714
  Transmission Date: 20110411
  Serious: No
  Sender: FDA-Public Use
  Company Number: US-KINGPHARMUSA00001-K200900862

PATIENT
  Age: 76 Year
  Sex: Male

DRUGS (2)
  1. FLECTOR [Suspect]
     Indication: ARTHRALGIA
     Dosage: UNK
     Route: 061
  2. COUMADIN [Concomitant]

REACTIONS (1)
  - HAEMATOCHEZIA [None]
